FAERS Safety Report 9485206 (Version 1)
Quarter: 2013Q3

REPORT INFORMATION
  Report Type: Spontaneous
  Country: IT (occurrence: IT)
  Receive Date: 20130828
  Receipt Date: 20130828
  Transmission Date: 20140515
  Serious: Yes (Hospitalization)
  Sender: FDA-Public Use
  Company Number: IT-MYLANLABS-2013S1018579

PATIENT
  Age: 84 Year
  Sex: Female

DRUGS (4)
  1. ALPRAZOLAM [Suspect]
     Indication: DEPRESSION
     Route: 048
     Dates: start: 20120424, end: 20130423
  2. MIRTAZAPINE [Suspect]
     Indication: DEPRESSION
     Route: 048
     Dates: start: 20120424, end: 20130423
  3. MIRAPEXIN [Suspect]
     Indication: PARKINSON^S DISEASE
     Route: 048
     Dates: start: 20120424, end: 20130423
  4. SINEMET [Suspect]
     Indication: PARKINSON^S DISEASE
     Route: 048
     Dates: start: 20120424, end: 20130423

REACTIONS (1)
  - Sopor [Recovering/Resolving]
